FAERS Safety Report 25271835 (Version 1)
Quarter: 2025Q2

REPORT INFORMATION
  Report Type: Spontaneous
  Country: LV (occurrence: LV)
  Receive Date: 20250506
  Receipt Date: 20250506
  Transmission Date: 20250716
  Serious: Yes (Other)
  Sender: JOHNSON AND JOHNSON
  Company Number: None

PATIENT
  Age: 90 Year
  Sex: Female
  Weight: 75 kg

DRUGS (7)
  1. XARELTO [Suspect]
     Active Substance: RIVAROXABAN
     Indication: Anticoagulant therapy
     Route: 048
     Dates: start: 20230801
  2. TRIMETAZIDINE [Suspect]
     Active Substance: TRIMETAZIDINE
     Indication: Cardiovascular disorder
  3. Levothyroxinum natricum [Concomitant]
     Indication: Thyroid disorder
     Dosage: 50 ?G
     Route: 048
     Dates: start: 20230801
  4. ATORVASTATIN [Concomitant]
     Active Substance: ATORVASTATIN
     Indication: Blood cholesterol
     Dosage: 10 MG
     Route: 048
     Dates: start: 20230801
  5. SPIRONOLACTONE [Concomitant]
     Active Substance: SPIRONOLACTONE
     Indication: Cardiovascular disorder
     Dosage: 25 MG
     Route: 048
     Dates: start: 20230801
  6. Bisoprololi fumaras (2:1) [Concomitant]
     Indication: Cardiovascular disorder
     Dosage: 5 MG
     Route: 048
     Dates: start: 20230801
  7. Entresto sprinkle [Concomitant]
     Indication: Product used for unknown indication
     Route: 048
     Dates: start: 20230801

REACTIONS (7)
  - Skin necrosis [Recovering/Resolving]
  - Impaired healing [Recovering/Resolving]
  - Peripheral swelling [Recovering/Resolving]
  - Wound haemorrhage [Recovering/Resolving]
  - Wound secretion [Recovering/Resolving]
  - Pain [Recovering/Resolving]
  - Condition aggravated [Recovering/Resolving]

NARRATIVE: CASE EVENT DATE: 20250310
